FAERS Safety Report 12304590 (Version 4)
Quarter: 2016Q2

REPORT INFORMATION
  Report Type: Spontaneous
  Country: US (occurrence: US)
  Receive Date: 20160426
  Receipt Date: 20160603
  Transmission Date: 20160815
  Serious: Yes (Life-Threatening, Hospitalization, Other)
  Sender: FDA-Public Use
  Company Number: PHEH2016US009713

PATIENT
  Age: 61 Year
  Sex: Female

DRUGS (12)
  1. HYDROMORPHONE [Suspect]
     Active Substance: HYDROMORPHONE
     Indication: PRODUCT USED FOR UNKNOWN INDICATION
     Route: 065
  2. LYRICA [Suspect]
     Active Substance: PREGABALIN
     Indication: PRODUCT USED FOR UNKNOWN INDICATION
     Route: 065
  3. TESTOSTERONE. [Concomitant]
     Active Substance: TESTOSTERONE
     Indication: PRODUCT USED FOR UNKNOWN INDICATION
     Route: 065
  4. PREDNISONE. [Suspect]
     Active Substance: PREDNISONE
     Indication: PRODUCT USED FOR UNKNOWN INDICATION
     Route: 065
  5. PROMETRIUM//PROGESTERONE [Concomitant]
     Indication: PRODUCT USED FOR UNKNOWN INDICATION
     Route: 065
  6. VIVELLE-DOT [Suspect]
     Active Substance: ESTRADIOL
     Indication: PRODUCT USED FOR UNKNOWN INDICATION
     Dosage: UNK
     Route: 065
     Dates: start: 2001
  7. PNEUMOCOCCAL VACCINE POLYVALENT NOS [Suspect]
     Active Substance: PNEUMOCOCCAL VACCINE POLYVALENT
     Indication: PRODUCT USED FOR UNKNOWN INDICATION
     Route: 065
  8. FENTANYL. [Suspect]
     Active Substance: FENTANYL
     Indication: PRODUCT USED FOR UNKNOWN INDICATION
     Route: 065
  9. BENADRYL                           /00647601/ [Concomitant]
     Active Substance: CAMPHOR\DIPHENHYDRAMINE\ZINC OXIDE
     Indication: PRODUCT USED FOR UNKNOWN INDICATION
     Dosage: UNK UNK, TID
     Route: 065
  10. NEURONTIN [Suspect]
     Active Substance: GABAPENTIN
     Indication: PRODUCT USED FOR UNKNOWN INDICATION
     Route: 065
  11. MORPHINE [Suspect]
     Active Substance: MORPHINE
     Indication: PRODUCT USED FOR UNKNOWN INDICATION
     Route: 065
  12. PROPOFOL. [Suspect]
     Active Substance: PROPOFOL
     Indication: PRODUCT USED FOR UNKNOWN INDICATION
     Route: 065

REACTIONS (43)
  - Feeling abnormal [Unknown]
  - Gallbladder disorder [Unknown]
  - Thyroid disorder [Unknown]
  - Pneumonia [Unknown]
  - Hypersensitivity [Unknown]
  - Malaise [Unknown]
  - Chest discomfort [Unknown]
  - Allergy to vaccine [Unknown]
  - Immunodeficiency [Unknown]
  - Type 2 diabetes mellitus [Unknown]
  - Depression [Unknown]
  - Menopausal symptoms [Unknown]
  - Joint swelling [Unknown]
  - Apparent death [Unknown]
  - Suicidal ideation [Unknown]
  - Road traffic accident [Unknown]
  - Renal injury [Unknown]
  - Bone pain [Unknown]
  - Fibromyalgia [Unknown]
  - Urticaria [Unknown]
  - Abdominal discomfort [Unknown]
  - Myalgia [Unknown]
  - Condition aggravated [Unknown]
  - Gait disturbance [Unknown]
  - Hyperhidrosis [Unknown]
  - Insomnia [Unknown]
  - Anxiety [Unknown]
  - Inflammation [Unknown]
  - Blood cholesterol increased [Unknown]
  - Weight increased [Unknown]
  - Blood immunoglobulin G decreased [Unknown]
  - Substance-induced psychotic disorder [Unknown]
  - Peripheral swelling [Unknown]
  - Arthralgia [Unknown]
  - Asthma [Unknown]
  - Dyspnoea [Unknown]
  - Rib fracture [Unknown]
  - Pneumothorax [Unknown]
  - Adrenal insufficiency [Unknown]
  - Neutropenia [Unknown]
  - Pain [Unknown]
  - Fluid retention [Unknown]
  - Liver disorder [Unknown]
